FAERS Safety Report 10221425 (Version 1)
Quarter: 2014Q2

REPORT INFORMATION
  Report Type: Spontaneous
  Country: NL (occurrence: NL)
  Receive Date: 20140606
  Receipt Date: 20140606
  Transmission Date: 20141212
  Serious: Yes (Other)
  Sender: FDA-Public Use
  Company Number: NL-TEVA-485336ISR

PATIENT
  Age: 73 Year
  Sex: Female

DRUGS (5)
  1. OXAZEPAM PCH TABLET 10 MG [Suspect]
     Dosage: 10 MILLIGRAM DAILY;
  2. OXAZEPAM PCH TABLET 10 MG [Suspect]
     Dosage: 20 MILLIGRAM DAILY;
  3. OXAZEPAM PCH TABLET 10 MG [Suspect]
     Dosage: .5 TABLET DAILY;
  4. ATENOLOL [Concomitant]
     Indication: HYPERTENSION
  5. EYE DROPS [Concomitant]
     Dates: start: 201402, end: 201402

REACTIONS (1)
  - Pemphigus [Not Recovered/Not Resolved]
